FAERS Safety Report 19421462 (Version 1)
Quarter: 2021Q2

REPORT INFORMATION
  Report Type: Spontaneous
  Country: FR (occurrence: FR)
  Receive Date: 20210616
  Receipt Date: 20210616
  Transmission Date: 20210717
  Serious: Yes (Hospitalization)
  Sender: FDA-Public Use
  Company Number: FR-SUN PHARMACEUTICAL INDUSTRIES LTD-2021RR-300890

PATIENT
  Age: 56 Year
  Sex: Female

DRUGS (2)
  1. ESOMEPRAZOLE. [Suspect]
     Active Substance: ESOMEPRAZOLE MAGNESIUM
     Indication: PROPHYLAXIS AGAINST GASTROINTESTINAL ULCER
     Dosage: 1 DOSAGE FORM, DAILY
     Route: 048
     Dates: start: 20210501, end: 20210503
  2. BREXIN 20 MG, COMPRIME SECABLE [Suspect]
     Active Substance: PIROXICAM BETADEX
     Indication: ARTHRALGIA
     Dosage: 1 DOSAGE FORM, DAILY
     Route: 048
     Dates: start: 20210501, end: 20210503

REACTIONS (2)
  - Erythema [Recovering/Resolving]
  - Pruritus [Recovering/Resolving]

NARRATIVE: CASE EVENT DATE: 20210510
